FAERS Safety Report 4884527-4 (Version None)
Quarter: 2006Q1

REPORT INFORMATION
  Report Type: 
  Country: None (occurrence: None)
  Receive Date: 20060117
  Receipt Date: 20060110
  Transmission Date: 20060701
  Serious: Yes (Other)
  Sender: FDA-Public Use
  Company Number: 2006005509

PATIENT
  Sex: Male
  Weight: 74.3899 kg

DRUGS (5)
  1. LIPITOR [Suspect]
     Indication: BLOOD CHOLESTEROL INCREASED
  2. SALSALATE (SALSALATE) [Concomitant]
  3. SENNA (SENNA) [Concomitant]
  4. ACETAMINOPHEN W/ CODEINE [Concomitant]
  5. IRON (IRON) [Concomitant]

REACTIONS (2)
  - ERECTILE DYSFUNCTION [None]
  - PROSTATE CANCER [None]
